FAERS Safety Report 11147592 (Version 2)
Quarter: 2015Q3

REPORT INFORMATION
  Report Type: Spontaneous
  Country: FR (occurrence: FR)
  Receive Date: 20150529
  Receipt Date: 20150901
  Transmission Date: 20151125
  Serious: Yes (Hospitalization)
  Sender: FDA-Public Use
  Company Number: FR-ROCHE-1585173

PATIENT
  Age: 5 Year
  Sex: Female
  Weight: 18 kg

DRUGS (5)
  1. SERETIDE [Concomitant]
     Active Substance: FLUTICASONE FUROATE\SALMETEROL XINAFOATE
  2. SINGULAIR [Concomitant]
     Active Substance: MONTELUKAST SODIUM
  3. ZADITEN [Concomitant]
     Active Substance: KETOTIFEN FUMARATE
  4. VENTOLINE [Concomitant]
     Active Substance: ALBUTEROL
  5. TAMIFLU [Suspect]
     Active Substance: OSELTAMIVIR PHOSPHATE
     Indication: PROPHYLAXIS
     Route: 048
     Dates: start: 20150311, end: 20150316

REACTIONS (3)
  - Henoch-Schonlein purpura [Recovered/Resolved]
  - Nephropathy [Recovered/Resolved]
  - Proteinuria [Recovered/Resolved]

NARRATIVE: CASE EVENT DATE: 20150316
